FAERS Safety Report 7704624-5 (Version None)
Quarter: 2011Q3

REPORT INFORMATION
  Report Type: 
  Country: None (occurrence: None)
  Receive Date: 20110823
  Receipt Date: 20110815
  Transmission Date: 20111222
  Serious: Yes (Death, Hospitalization)
  Sender: FDA-Public Use
  Company Number: AR-GLAXOSMITHKLINE-A0941880A

PATIENT
  Age: 55 Year
  Sex: Female

DRUGS (3)
  1. TRAMADOL HCL [Concomitant]
     Route: 065
  2. VOTRIENT [Suspect]
     Indication: RENAL CANCER
     Dosage: 800MGD PER DAY
     Route: 048
     Dates: start: 20110510, end: 20110728
  3. IBUPROFEN [Concomitant]
     Route: 065

REACTIONS (5)
  - DEATH [None]
  - LUNG INFILTRATION [None]
  - DYSPNOEA [None]
  - MUCOSAL INFLAMMATION [None]
  - INTERSTITIAL LUNG DISEASE [None]
